FAERS Safety Report 7814143 (Version 3)
Quarter: 2012Q4

REPORT INFORMATION
  Report Type: Report from Study
  Country: JP (occurrence: JP)
  Receive Date: 20110216
  Receipt Date: 20120905
  Transmission Date: 20130627
  Serious: Yes (Death, Hospitalization, Disabling, Other)
  Sender: FDA-Public Use
  Company Number: JP-BRISTOL-MYERS SQUIBB COMPANY-15540818

PATIENT
  Age: 66 Year
  Sex: Male

DRUGS (22)
  1. REYATAZ CAPS [Suspect]
     Indication: HIV INFECTION
     Route: 048
     Dates: start: 20070619, end: 20080802
  2. EPZICOM [Suspect]
     Indication: HIV INFECTION
     Dosage: 1df=1 tablet;1Apr07-02Aug08
8sep08-17Apr09
28Apr-19May09
22May-07Jun09
     Route: 048
     Dates: start: 20070401, end: 20090607
  3. ISENTRESS [Suspect]
     Indication: HIV INFECTION
     Dosage: 08Sep08-17Apr09
28apr09-19May09
22May09-07Jun09
     Route: 048
     Dates: start: 20080908, end: 20090607
  4. PAXIL [Concomitant]
     Indication: PANIC DISORDER
     Dosage: Form: Tablet.
     Route: 048
     Dates: start: 20070401, end: 20080802
  5. LENDORMIN [Concomitant]
     Indication: PANIC DISORDER
     Dosage: Form: Tablet.
     Route: 048
     Dates: start: 20070401, end: 20080802
  6. NOVOLIN N [Concomitant]
     Indication: DIABETES MELLITUS
     Dosage: 1Apr07-10May08,3-5units/d
29Jan09-3Feb09,6 units/d Form: Injection
     Route: 058
     Dates: start: 20070401, end: 20080510
  7. NOVOLIN R [Concomitant]
     Indication: DIABETES MELLITUS
     Dosage: 1Apr07-10May08,10-14u/d
24Aug-25Oct08,3-15ux2/d
30Jan-20Feb09,2-9ux3/d
5Mar-25Mar09,10-20ux3/d
     Route: 058
     Dates: start: 20070401, end: 20080510
  8. GASTER [Concomitant]
     Indication: ABDOMINAL PAIN UPPER
     Dosage: 1Apr07-2aug08,10mgx2/d
19Sep08-17Apr09,20mg/d
     Route: 048
     Dates: start: 20070401, end: 20080802
  9. GASTER [Concomitant]
     Indication: PROPHYLAXIS
     Dosage: 1Apr07-2aug08,10mgx2/d
19Sep08-17Apr09,20mg/d
     Route: 048
     Dates: start: 20070401, end: 20080802
  10. RECOMBINATE [Concomitant]
     Indication: HAEMOPHILIA
     Dosage: 1df=1000 units ,1-2 days,
05Feb08-03Aug08,1000 unitsx2 /weeks
     Dates: start: 20070401, end: 20080813
  11. ADVATE [Concomitant]
     Indication: HAEMOPHILIA
     Dosage: inj,1 df=1000 units
     Dates: start: 20070814, end: 20080107
  12. CROSS EIGHT M [Concomitant]
     Indication: HAEMOPHILIA
     Dosage: 1000U x2/wk
4Aug-21sep08,500-1500Ux2/d
22Sep08-7Jan09,1000-2000U 1-3t/wk
8Jan-1Jun09 1000U/wk
     Dates: start: 20080108, end: 20080204
  13. CIPROXAN [Concomitant]
     Indication: EPIDIDYMITIS
     Dosage: Form: inj
     Route: 041
     Dates: start: 20081020, end: 20081030
  14. HUMALOG [Concomitant]
     Indication: DIABETES MELLITUS
     Dosage: 7-16Ux2/d
26Oct-09No08,8Ux2/d
10nov-07De08,14-18unx3/d
08De08-30Jan09,9-17ux2/d inj
     Route: 058
     Dates: start: 20080511, end: 20080802
  15. LEVEMIR [Concomitant]
     Indication: DIABETES MELLITUS
     Dosage: 23Jul-02Aug08,3-5units/d
24Aug-09Nov08,4-8units/d inj
     Route: 058
     Dates: start: 20080723, end: 20081109
  16. HUMULIN R [Concomitant]
     Indication: DIABETES MELLITUS
     Dosage: 1df=2-8 units ,2-3/day inj
     Route: 058
     Dates: start: 20080817, end: 20080823
  17. LANTUS [Concomitant]
     Indication: DIABETES MELLITUS
     Dosage: 08Dec08-28jan09,5-16units/d
4Feb-27Mar09,6-10units/d inj
     Route: 058
     Dates: start: 20081208, end: 20090327
  18. OMEPRAL [Concomitant]
     Indication: PROPHYLAXIS
     Dates: start: 20080911, end: 20080918
  19. RISPERDAL [Concomitant]
     Indication: PANIC DISORDER
     Dosage: Form: tablet
     Route: 048
     Dates: start: 20090212, end: 20090609
  20. LACTULOSE [Concomitant]
     Indication: HEPATITIS C
     Dosage: 12Jan-12Mar09,200mgx3/d,powder
13Mar-17Apr09,30mlx3/d,syrup
     Route: 048
     Dates: start: 20090112, end: 20090312
  21. RENIVACE [Concomitant]
     Indication: HYPERTENSION
     Dosage: Form: Tablet.
     Route: 048
     Dates: start: 20090212, end: 20090417
  22. CONIEL [Concomitant]
     Indication: HYPERTENSION
     Dosage: Form: Tablet.
     Route: 048
     Dates: start: 20090224, end: 20090406

REACTIONS (4)
  - Chronic hepatitis C [Fatal]
  - Hepatic cirrhosis [Fatal]
  - Cerebral infarction [Not Recovered/Not Resolved]
  - Renal failure acute [Unknown]
